FAERS Safety Report 13859651 (Version 1)
Quarter: 2017Q3

REPORT INFORMATION
  Report Type: Spontaneous
  Country: US (occurrence: US)
  Receive Date: 20170811
  Receipt Date: 20170811
  Transmission Date: 20171127
  Serious: Yes (Hospitalization, Other)
  Sender: FDA-Public Use
  Company Number: None

PATIENT
  Sex: Male
  Weight: 107.1 kg

DRUGS (7)
  1. POTASSIUM CL ER [Concomitant]
     Active Substance: POTASSIUM CHLORIDE
  2. TRULICITY [Suspect]
     Active Substance: DULAGLUTIDE
     Indication: TYPE 2 DIABETES MELLITUS
     Dosage: ?          QUANTITY:1 INJECTION(S);OTHER FREQUENCY:ONCE A WEEK;OTHER ROUTE:ABDOMEN INJECTION?
     Dates: start: 20170804, end: 20170804
  3. HYDROCHLOROTHIAZIDE. [Concomitant]
     Active Substance: HYDROCHLOROTHIAZIDE
  4. FARXIGA [Concomitant]
     Active Substance: DAPAGLIFLOZIN PROPANEDIOL
  5. DILTIAZEM. [Concomitant]
     Active Substance: DILTIAZEM
  6. VITAMINS [Concomitant]
     Active Substance: VITAMINS
  7. LANTUS [Concomitant]
     Active Substance: INSULIN GLARGINE

REACTIONS (9)
  - Nausea [None]
  - Dyspnoea [None]
  - Back pain [None]
  - Chest pain [None]
  - Blood glucose increased [None]
  - Gastric pH decreased [None]
  - Asthenia [None]
  - Abdominal pain [None]
  - Vomiting [None]

NARRATIVE: CASE EVENT DATE: 20170806
